FAERS Safety Report 22237150 (Version 2)
Quarter: 2024Q2

REPORT INFORMATION
  Report Type: Spontaneous
  Country: US (occurrence: None)
  Receive Date: 20230421
  Receipt Date: 20240418
  Transmission Date: 20240716
  Serious: No
  Sender: FDA-Public Use
  Company Number: US-ROCHE-3279366

PATIENT
  Sex: Male

DRUGS (1)
  1. ESBRIET [Suspect]
     Active Substance: PIRFENIDONE
     Indication: Interstitial lung disease
     Dosage: TAKE 1 CAPSULE BY MOUTH 3 TIMES A DAY FOR 7 DAYS THEN TAKE 2 CAPSULES BY MOUTH 3 TIMES A DAY FOR 7 D
     Route: 048
     Dates: start: 202301

REACTIONS (2)
  - Off label use [Unknown]
  - Blood pressure increased [Unknown]
